FAERS Safety Report 16723333 (Version 1)
Quarter: 2019Q3

REPORT INFORMATION
  Report Type: Spontaneous
  Country: CA (occurrence: CA)
  Receive Date: 20190821
  Receipt Date: 20190821
  Transmission Date: 20191005
  Serious: Yes (Other)
  Sender: FDA-Public Use
  Company Number: CA-TEVA-2019-CA-1095100

PATIENT
  Age: 68 Year
  Weight: 136 kg

DRUGS (6)
  1. RATIO-LENOLTEC #3 [Concomitant]
     Active Substance: ACETAMINOPHEN\CAFFEINE\CODEINE PHOSPHATE
  2. OLMETEC PLUS [Concomitant]
     Active Substance: HYDROCHLOROTHIAZIDE\OLMESARTAN MEDOXOMIL
  3. IMOVANE [Concomitant]
     Active Substance: ZOPICLONE
  4. OLMESARTAN [Suspect]
     Active Substance: OLMESARTAN
     Indication: HYPERTENSION
     Dosage: 1 DOSAGE FORMS DAILY;
  5. NEXIUM - 40MG [Concomitant]
  6. AVAMYS [Concomitant]
     Active Substance: FLUTICASONE FUROATE

REACTIONS (4)
  - Urinary incontinence [Recovered/Resolved]
  - Product substitution issue [Recovered/Resolved]
  - Oedema peripheral [Recovered/Resolved]
  - Cough [Recovered/Resolved]
